FAERS Safety Report 6590321-9 (Version None)
Quarter: 2010Q1

REPORT INFORMATION
  Report Type: 
  Country: None (occurrence: None)
  Receive Date: 20100219
  Receipt Date: 20100212
  Transmission Date: 20100710
  Serious: Yes (Hospitalization)
  Sender: FDA-Public Use
  Company Number: FR-SANOFI-AVENTIS-2010SA008411

PATIENT
  Age: 36 Year
  Sex: Male

DRUGS (9)
  1. STILNOX [Suspect]
     Indication: DRUG ABUSE
     Route: 048
     Dates: start: 19910101, end: 20080101
  2. STILNOX [Suspect]
     Indication: OFF LABEL USE
     Route: 048
     Dates: start: 19910101, end: 20080101
  3. STILNOX [Suspect]
     Route: 048
     Dates: start: 20080101, end: 20090201
  4. STILNOX [Suspect]
     Route: 048
     Dates: start: 20080101, end: 20090201
  5. DI ANTALVIC [Suspect]
     Indication: DRUG ABUSE
     Route: 048
     Dates: start: 20070101
  6. CITALOPRAM [Suspect]
     Indication: DRUG ABUSE
     Route: 048
     Dates: start: 20070101
  7. LYSANXIA [Suspect]
     Indication: DRUG ABUSE
     Route: 048
     Dates: start: 20070101
  8. DOMPERIDONE [Suspect]
     Indication: DRUG ABUSE
     Route: 048
     Dates: start: 20070101
  9. NIFUROXAZIDE [Concomitant]

REACTIONS (3)
  - DRUG ABUSE [None]
  - DRUG DEPENDENCE [None]
  - OFF LABEL USE [None]
